FAERS Safety Report 14032520 (Version 1)
Quarter: 2017Q4

REPORT INFORMATION
  Report Type: Spontaneous
  Country: CN (occurrence: CN)
  Receive Date: 20171003
  Receipt Date: 20171003
  Transmission Date: 20180321
  Serious: Yes (Other)
  Sender: FDA-Public Use
  Company Number: CN-LUPIN PHARMACEUTICALS INC.-2016-03049

PATIENT
  Age: 26 Year
  Sex: Female

DRUGS (2)
  1. DOXYCYCLINE CAPSULES [Suspect]
     Active Substance: DOXYCYCLINE
     Indication: ACNE
     Dosage: 0.1 G, BID
     Route: 048
  2. CLINDAMYCIN. [Concomitant]
     Active Substance: CLINDAMYCIN
     Indication: ACNE
     Dosage: UNK
     Route: 065

REACTIONS (1)
  - Oesophageal ulcer [Recovered/Resolved]
